FAERS Safety Report 7190977-6 (Version None)
Quarter: 2010Q4

REPORT INFORMATION
  Report Type: 
  Country: None (occurrence: None)
  Receive Date: 20101223
  Receipt Date: 20101214
  Transmission Date: 20110411
  Serious: Yes (Hospitalization)
  Sender: FDA-Public Use
  Company Number: US-JNJCH-2010028814

PATIENT
  Age: 67 Year
  Sex: Male
  Weight: 132.9 kg

DRUGS (2)
  1. ROLAIDS [Suspect]
     Indication: ABDOMINAL DISCOMFORT
     Dosage: TEXT:TWO TO THREE EVERY TWO HOURS
     Route: 048
  2. ROLAIDS SOFTCHEWS UNSPECIFIED [Suspect]
     Indication: ABDOMINAL DISCOMFORT
     Dosage: TEXT:UNSPECIFIED
     Route: 048

REACTIONS (2)
  - DIVERTICULITIS [None]
  - WEIGHT DECREASED [None]
